FAERS Safety Report 16238684 (Version 1)
Quarter: 2019Q2

REPORT INFORMATION
  Report Type: Spontaneous
  Country: US (occurrence: US)
  Receive Date: 20190425
  Receipt Date: 20190425
  Transmission Date: 20190711
  Serious: No
  Sender: FDA-Public Use
  Company Number: US-BAYER-2019-076948

PATIENT
  Age: 66 Year
  Sex: Female
  Weight: 68 kg

DRUGS (18)
  1. XANAX [Concomitant]
     Active Substance: ALPRAZOLAM
  2. CRANBERRY [VACCINIUM MACROCARPON] [Concomitant]
  3. TRINTELLIX [Concomitant]
     Active Substance: VORTIOXETINE HYDROBROMIDE
  4. DICLOFENAC SODIUM. [Concomitant]
     Active Substance: DICLOFENAC SODIUM
  5. INCRUSE ELLIPTA [Concomitant]
     Active Substance: UMECLIDINIUM BROMIDE
  6. TOVIAZ [Concomitant]
     Active Substance: FESOTERODINE FUMARATE
  7. FIBER [Concomitant]
     Active Substance: PSYLLIUM HUSK
  8. VITAMIN D3 [Concomitant]
     Active Substance: CHOLECALCIFEROL
  9. AMITIZA [Concomitant]
     Active Substance: LUBIPROSTONE
  10. INVEGA [Concomitant]
     Active Substance: PALIPERIDONE
  11. MIRALAX [Suspect]
     Active Substance: POLYETHYLENE GLYCOL 3350
     Indication: CONSTIPATION
     Dosage: UNK
     Route: 048
     Dates: start: 20190415, end: 20190415
  12. FAMOTIDINE. [Concomitant]
     Active Substance: FAMOTIDINE
  13. PRAVASTATIN. [Concomitant]
     Active Substance: PRAVASTATIN
  14. TRAZODONE [Concomitant]
     Active Substance: TRAZODONE HYDROCHLORIDE
  15. LOSARTAN. [Concomitant]
     Active Substance: LOSARTAN
  16. DULOXETINE. [Concomitant]
     Active Substance: DULOXETINE
  17. METOPROLOL. [Concomitant]
     Active Substance: METOPROLOL
  18. ADVAIR HFA [Concomitant]
     Active Substance: FLUTICASONE PROPIONATE\SALMETEROL XINAFOATE

REACTIONS (1)
  - Diarrhoea [Unknown]
